FAERS Safety Report 25985349 (Version 1)
Quarter: 2025Q4

REPORT INFORMATION
  Report Type: Spontaneous
  Country: US (occurrence: None)
  Receive Date: 20251031
  Receipt Date: 20251031
  Transmission Date: 20260117
  Serious: No
  Sender: FDA-CTU
  Company Number: None

PATIENT
  Sex: Female

DRUGS (1)
  1. WINREVAIR [Suspect]
     Active Substance: SOTATERCEPT-CSRK
     Indication: Pulmonary arterial hypertension
     Dosage: 1.1 ML Q 3 WEEKS SUBCUTANEOUS
     Route: 058

REACTIONS (5)
  - Neuropathy peripheral [None]
  - Peripheral swelling [None]
  - Pneumonia [None]
  - Product dose omission issue [None]
  - Therapy change [None]
